FAERS Safety Report 12299465 (Version 1)
Quarter: 2016Q2

REPORT INFORMATION
  Report Type: Spontaneous
  Country: US (occurrence: None)
  Receive Date: 20160422
  Receipt Date: 20160422
  Transmission Date: 20160815
  Serious: No
  Sender: FDA-Public Use
  Company Number: None

PATIENT
  Age: 55 Year
  Sex: Female

DRUGS (5)
  1. ALEVE [Concomitant]
     Active Substance: NAPROXEN SODIUM
  2. ZOLEDRONIC [Concomitant]
     Active Substance: ZOLEDRONIC ACID
  3. ANASTROZOLE. [Concomitant]
     Active Substance: ANASTROZOLE
  4. IBRANCE [Suspect]
     Active Substance: PALBOCICLIB
     Indication: NEOPLASM MALIGNANT
     Dosage: 125 MG  QD1-21 OF 28D CYCLE PO
     Route: 048
     Dates: start: 20150818, end: 20160413
  5. MULTI-VITAMIN [Concomitant]
     Active Substance: .ALPHA.-TOCOPHEROL ACETATE, DL-\ASCORBIC ACID\CYANOCOBALAMIN\FLUORIDE ION\FOLIC ACID\NIACIN\PYRIDOXINE\RIBOFLAVIN\THIAMINE\VITAMIN A\VITAMIN D

REACTIONS (2)
  - Drug ineffective [None]
  - Metastatic neoplasm [None]

NARRATIVE: CASE EVENT DATE: 20160413
